FAERS Safety Report 5598544-2 (Version None)
Quarter: 2007Q4

REPORT INFORMATION
  Report Type: 
  Country: None (occurrence: None)
  Receive Date: 20071226
  Receipt Date: 20071105
  Transmission Date: 20080405
  Serious: No
  Sender: FDA-Public Use
  Company Number: 2007PV029925

PATIENT
  Age: 64 Year
  Sex: Male
  Weight: 79.3795 kg

DRUGS (6)
  1. SYMLIN [Suspect]
     Indication: TYPE 1 DIABETES MELLITUS
     Dosage: 60, 45, 30, 15 MCG, SC
     Route: 058
     Dates: start: 20070201, end: 20070201
  2. SYMLIN [Suspect]
     Indication: TYPE 1 DIABETES MELLITUS
     Dosage: 60, 45, 30, 15 MCG, SC
     Route: 058
     Dates: start: 20070204, end: 20070201
  3. SYMLIN [Suspect]
     Indication: TYPE 1 DIABETES MELLITUS
     Dosage: 60, 45, 30, 15 MCG, SC
     Route: 058
     Dates: start: 20070207
  4. INSULIN [Concomitant]
  5. SIMVASTATIN [Concomitant]
  6. ALTACE [Concomitant]

REACTIONS (3)
  - BLOOD GLUCOSE DECREASED [None]
  - BLOOD GLUCOSE INCREASED [None]
  - DYSPEPSIA [None]
